FAERS Safety Report 7355967-9 (Version None)
Quarter: 2011Q1

REPORT INFORMATION
  Report Type: 
  Country: None (occurrence: None)
  Receive Date: 20110316
  Receipt Date: 20101216
  Transmission Date: 20110831
  Serious: Yes (Hospitalization)
  Sender: FDA-Public Use
  Company Number: US-ABBOTT-10P-163-0682289-00

PATIENT
  Sex: Male
  Weight: 85 kg

DRUGS (10)
  1. CRESTOR [Concomitant]
     Indication: HYPERLIPIDAEMIA
     Dosage: 20 MG DAILY
     Route: 048
  2. SYMMETREL [Concomitant]
     Indication: PARKINSON'S DISEASE
     Dosage: 100 MG DAILY
  3. MIRAPEX [Concomitant]
     Indication: PARKINSON'S DISEASE
     Route: 048
  4. ASPIRIN [Concomitant]
     Indication: CORONARY ARTERY DISEASE
  5. PROSCAR [Concomitant]
     Indication: PRODUCT USED FOR UNKNOWN INDICATION
     Dosage: 5 MG DAILY
     Route: 048
  6. TRILIPIX [Suspect]
     Indication: HYPERLIPIDAEMIA
  7. SINEMET [Concomitant]
     Indication: PARKINSON'S DISEASE
     Dosage: 25/100 TID
  8. LISINOPRIL [Concomitant]
     Indication: HYPERTENSION
     Dosage: 20 MG DAILY
  9. TRILIPIX [Suspect]
     Indication: CORONARY ARTERY DISEASE
     Dosage: 135 MG DAILY
     Route: 048
     Dates: start: 20100815, end: 20101027
  10. STALEVO 100 [Concomitant]
     Indication: PARKINSON'S DISEASE
     Dosage: 200 TID

REACTIONS (2)
  - PULMONARY EMBOLISM [None]
  - DEEP VEIN THROMBOSIS [None]
